FAERS Safety Report 25184915 (Version 1)
Quarter: 2025Q2

REPORT INFORMATION
  Report Type: Spontaneous
  Country: CN (occurrence: CN)
  Receive Date: 20250410
  Receipt Date: 20250410
  Transmission Date: 20250717
  Serious: Yes (Disabling)
  Sender: PFIZER
  Company Number: CN-PFIZER INC-PV202500041951

PATIENT
  Age: 4 Year
  Sex: Male
  Weight: 14.5 kg

DRUGS (7)
  1. CYTARABINE [Suspect]
     Active Substance: CYTARABINE
     Indication: Acute lymphocytic leukaemia
     Dosage: 35 MG Q12H
     Route: 058
     Dates: start: 20250329, end: 20250404
  2. CYTARABINE [Suspect]
     Active Substance: CYTARABINE
     Dosage: 35 MG ONCE
     Route: 037
     Dates: start: 20250330, end: 20250330
  3. METHOTREXATE SODIUM [Suspect]
     Active Substance: METHOTREXATE SODIUM
     Indication: Acute lymphocytic leukaemia
     Dosage: 12.5 MG ONCE
     Route: 037
     Dates: start: 20250330, end: 20250330
  4. CYCLOPHOSPHAMIDE [Suspect]
     Active Substance: CYCLOPHOSPHAMIDE
     Indication: Acute lymphocytic leukaemia
     Dosage: 0.65 G IVGTT ONCE
     Route: 041
     Dates: start: 20250329, end: 20250329
  5. SODIUM CHLORIDE [Concomitant]
     Active Substance: SODIUM CHLORIDE
     Indication: Vehicle solution use
     Dosage: 250 ML IVGTT ONCE
     Route: 041
     Dates: start: 20250329, end: 20250329
  6. SODIUM CHLORIDE [Concomitant]
     Active Substance: SODIUM CHLORIDE
     Dosage: 0.5 ML Q12H
     Route: 058
     Dates: start: 20250329, end: 20250404
  7. SODIUM CHLORIDE [Concomitant]
     Active Substance: SODIUM CHLORIDE
     Dosage: 8 ML ONCE
     Route: 037
     Dates: start: 20250303, end: 20250303

REACTIONS (3)
  - Hepatic function abnormal [Recovering/Resolving]
  - Alanine aminotransferase increased [Recovering/Resolving]
  - Aspartate aminotransferase increased [Recovered/Resolved]

NARRATIVE: CASE EVENT DATE: 20250403
